FAERS Safety Report 6718625-7 (Version None)
Quarter: 2010Q2

REPORT INFORMATION
  Report Type: 
  Country: None (occurrence: None)
  Receive Date: 20100505
  Receipt Date: 20100422
  Transmission Date: 20101027
  Serious: Yes (Hospitalization, Other)
  Sender: FDA-Public Use
  Company Number: 167-20484-09090536

PATIENT
  Sex: Male
  Weight: 2.17 kg

DRUGS (11)
  1. INNOHEP [Suspect]
     Dosage: TRANSPLACENTAL, TRANSPLACENTAL, TRANSPLACENTAL, TRANSPLACENTAL, TRANSPLACENTAL
     Route: 064
     Dates: start: 20000627, end: 20000704
  2. INNOHEP [Suspect]
     Dosage: TRANSPLACENTAL, TRANSPLACENTAL, TRANSPLACENTAL, TRANSPLACENTAL, TRANSPLACENTAL
     Route: 064
     Dates: start: 20000704, end: 20000712
  3. INNOHEP [Suspect]
     Dosage: TRANSPLACENTAL, TRANSPLACENTAL, TRANSPLACENTAL, TRANSPLACENTAL, TRANSPLACENTAL
     Route: 064
     Dates: start: 20000712, end: 20000810
  4. INNOHEP [Suspect]
     Dosage: TRANSPLACENTAL, TRANSPLACENTAL, TRANSPLACENTAL, TRANSPLACENTAL, TRANSPLACENTAL
     Route: 064
     Dates: start: 20000810, end: 20001002
  5. INNOHEP [Suspect]
     Dosage: TRANSPLACENTAL, TRANSPLACENTAL, TRANSPLACENTAL, TRANSPLACENTAL, TRANSPLACENTAL
     Route: 064
     Dates: start: 20001002, end: 20010115
  6. LACTULOSE [Concomitant]
  7. FYBOGEL (PLANTAGO OVATA) [Concomitant]
  8. GAVISCON [Concomitant]
  9. FERROUS SULFATE TAB [Concomitant]
  10. ACETAMINOPHEN [Concomitant]
  11. BETAMETHASONE [Concomitant]

REACTIONS (2)
  - PREMATURE BABY [None]
  - SMALL FOR DATES BABY [None]
